FAERS Safety Report 6207123-5 (Version None)
Quarter: 2009Q2

REPORT INFORMATION
  Report Type: 
  Country: None (occurrence: None)
  Receive Date: 20090528
  Receipt Date: 20090119
  Transmission Date: 20091009
  Serious: Yes (Hospitalization)
  Sender: FDA-Public Use
  Company Number: FR-PFIZER INC-2009159603

PATIENT
  Sex: Male

DRUGS (5)
  1. SOLU-MEDROL [Suspect]
     Indication: PREMEDICATION
     Dosage: 80 MG, CYCLIC
     Route: 042
  2. PACLITAXEL [Suspect]
     Dosage: 200 MG, CYCLIC
     Route: 042
     Dates: end: 20090107
  3. ONDANSETRON [Suspect]
     Indication: PREMEDICATION
     Dosage: 8 MG, CYCLIC
     Route: 042
  4. POLARAMINE [Suspect]
     Indication: PREMEDICATION
     Dosage: 5 MG/ML, CYCLIC
  5. AZANTAC [Suspect]
     Indication: PREMEDICATION
     Dosage: UNK

REACTIONS (2)
  - HYPERTENSION [None]
  - MALAISE [None]
